FAERS Safety Report 9473170 (Version 1)
Quarter: 2013Q3

REPORT INFORMATION
  Report Type: Spontaneous
  Country: US (occurrence: US)
  Receive Date: 20130823
  Receipt Date: 20130823
  Transmission Date: 20140515
  Serious: No
  Sender: FDA-Public Use
  Company Number: US-BRISTOL-MYERS SQUIBB COMPANY-18712257

PATIENT
  Age: 62 Year
  Sex: Male
  Weight: 81.63 kg

DRUGS (9)
  1. SPRYCEL [Suspect]
     Indication: CHRONIC MYELOID LEUKAEMIA
     Route: 048
     Dates: start: 20130101
  2. DIOVAN [Concomitant]
  3. CASODEX [Concomitant]
  4. LANTUS [Concomitant]
  5. ACETYLSALICYLIC ACID [Concomitant]
  6. METOPROLOL [Concomitant]
  7. PLAVIX [Concomitant]
  8. LOVASTATIN [Concomitant]
  9. PRILOSEC [Concomitant]

REACTIONS (3)
  - Fatigue [Not Recovered/Not Resolved]
  - Decreased appetite [Not Recovered/Not Resolved]
  - Weight decreased [Not Recovered/Not Resolved]
